FAERS Safety Report 4368836-3 (Version None)
Quarter: 2004Q2

REPORT INFORMATION
  Report Type: 
  Country: None (occurrence: None)
  Receive Date: 20040528
  Receipt Date: 20040517
  Transmission Date: 20050107
  Serious: Yes (Hospitalization)
  Sender: FDA-Public Use
  Company Number: RENA-11042

PATIENT
  Age: 51 Year
  Sex: Female

DRUGS (5)
  1. RENAGEL [Suspect]
     Indication: HYPERPHOSPHATAEMIA
     Dosage: 3.2 G TID PO
     Route: 048
     Dates: start: 20020101, end: 20040501
  2. RENAGEL [Suspect]
     Indication: HYPERPHOSPHATAEMIA
     Dosage: 1.6 G TID PO
     Route: 048
     Dates: start: 20010101, end: 20010101
  3. RENAGEL [Suspect]
     Indication: HYPERPHOSPHATAEMIA
     Dosage: 1.6 G TID PO
     Route: 048
     Dates: start: 20010101, end: 20020101
  4. CLARINEX [Concomitant]
  5. NITROGLYCERIN [Concomitant]

REACTIONS (7)
  - COMMUNICATION DISORDER [None]
  - CONFUSIONAL STATE [None]
  - CONVERSION DISORDER [None]
  - DEPRESSION [None]
  - LABORATORY TEST ABNORMAL [None]
  - MENTAL DISORDER [None]
  - POST PROCEDURAL COMPLICATION [None]
